FAERS Safety Report 6061878-1 (Version None)
Quarter: 2009Q1

REPORT INFORMATION
  Report Type: 
  Country: None (occurrence: None)
  Receive Date: 20090202
  Receipt Date: 20090121
  Transmission Date: 20090719
  Serious: Yes (Hospitalization)
  Sender: FDA-Public Use
  Company Number: PHHY2008GB31036

PATIENT
  Sex: Female

DRUGS (6)
  1. CLOZARIL [Suspect]
     Indication: SCHIZOPHRENIA
     Dosage: 100 MG/DAY
     Dates: start: 20071121, end: 20071126
  2. CLOZARIL [Suspect]
     Dosage: 100 MG/DAY
     Dates: start: 20081120, end: 20081128
  3. AMOXICILLIN [Concomitant]
  4. HALOPERIDOL [Concomitant]
     Indication: SCHIZOPHRENIA
     Dosage: 15 MG/DAY, LONG TERM OVER 2 YEARS
     Route: 048
  5. DEPAKOTE [Concomitant]
     Indication: SCHIZOPHRENIA
     Dosage: 2.5 G/DAY, LONG TERM OVER 2 YEARS
     Route: 048
  6. DEPAKOTE [Concomitant]
     Indication: MANIA

REACTIONS (8)
  - CHEST DISCOMFORT [None]
  - LETHARGY [None]
  - NEUTROPENIA [None]
  - NEUTROPHIL COUNT DECREASED [None]
  - OXYGEN SATURATION DECREASED [None]
  - PULMONARY EMBOLISM [None]
  - SOMNOLENCE [None]
  - WHITE BLOOD CELL COUNT DECREASED [None]
